FAERS Safety Report 15276539 (Version 1)
Quarter: 2018Q4

REPORT INFORMATION
  Report Type: Spontaneous
  Country: IT (occurrence: IT)
  Receive Date: 20180814
  Receipt Date: 20180814
  Transmission Date: 20190204
  Serious: Yes (Other)
  Sender: FDA-Public Use
  Company Number: IT-NALPROPION PHARMACEUTICALS INC-2053703

PATIENT
  Age: 41 Year
  Sex: Female
  Weight: 95 kg

DRUGS (1)
  1. CONTRAVE [Suspect]
     Active Substance: BUPROPION HYDROCHLORIDE\NALTREXONE HYDROCHLORIDE
     Indication: OBESITY
     Route: 048
     Dates: start: 20180415, end: 20180502

REACTIONS (7)
  - Laryngeal oedema [Recovering/Resolving]
  - Lymphadenopathy [Recovering/Resolving]
  - Urticaria [Recovering/Resolving]
  - Abdominal pain [Recovering/Resolving]
  - Constipation [Recovering/Resolving]
  - Pruritus [Recovering/Resolving]
  - Mood altered [Recovering/Resolving]

NARRATIVE: CASE EVENT DATE: 20180502
